FAERS Safety Report 22349381 (Version 3)
Quarter: 2024Q3

REPORT INFORMATION
  Report Type: Report from Study
  Country: CA (occurrence: CA)
  Receive Date: 20230522
  Receipt Date: 20240830
  Transmission Date: 20241017
  Serious: Yes (Other)
  Sender: ROCHE
  Company Number: CA-ROCHE-2330517

PATIENT
  Age: 69 Year
  Sex: Female
  Weight: 94.0 kg

DRUGS (14)
  1. AVASTIN [Suspect]
     Active Substance: BEVACIZUMAB
     Indication: Hereditary haemorrhagic telangiectasia
     Route: 042
     Dates: start: 20190510, end: 20190510
  2. AVASTIN [Suspect]
     Active Substance: BEVACIZUMAB
     Route: 042
     Dates: start: 20191023, end: 20211116
  3. AVASTIN [Suspect]
     Active Substance: BEVACIZUMAB
     Route: 042
     Dates: start: 20220516, end: 20231115
  4. AVASTIN [Suspect]
     Active Substance: BEVACIZUMAB
     Route: 042
     Dates: start: 20190530, end: 2019
  5. AVASTIN [Suspect]
     Active Substance: BEVACIZUMAB
     Route: 042
     Dates: start: 20191120, end: 20191120
  6. AVASTIN [Suspect]
     Active Substance: BEVACIZUMAB
     Route: 042
     Dates: start: 20191218
  7. AVASTIN [Suspect]
     Active Substance: BEVACIZUMAB
     Route: 042
     Dates: start: 20190530
  8. AVASTIN [Suspect]
     Active Substance: BEVACIZUMAB
     Dosage: FREQUENCY: Q 2 WEEKS FOR 5 DOSES, THEN 1 MONTH FOR 10 MONTHS
     Route: 042
     Dates: start: 20190530, end: 20200501
  9. AVASTIN [Suspect]
     Active Substance: BEVACIZUMAB
     Route: 042
     Dates: start: 20200814
  10. AVASTIN [Suspect]
     Active Substance: BEVACIZUMAB
     Route: 042
     Dates: start: 20190510, end: 20190923
  11. AVASTIN [Suspect]
     Active Substance: BEVACIZUMAB
     Route: 042
  12. AVASTIN [Suspect]
     Active Substance: BEVACIZUMAB
     Route: 042
  13. AVASTIN [Suspect]
     Active Substance: BEVACIZUMAB
     Route: 042
  14. AVASTIN [Suspect]
     Active Substance: BEVACIZUMAB
     Route: 042

REACTIONS (13)
  - Hypertension [Recovered/Resolved]
  - Epistaxis [Not Recovered/Not Resolved]
  - Hypertension [Unknown]
  - Heart rate decreased [Unknown]
  - Blood pressure systolic increased [Unknown]
  - Oxygen saturation decreased [Unknown]
  - Blood pressure diastolic abnormal [Unknown]
  - Body temperature decreased [Unknown]
  - Blood pressure diastolic decreased [Unknown]
  - Poor venous access [Unknown]
  - Off label use [Unknown]
  - Weight increased [Unknown]
  - Weight decreased [Unknown]

NARRATIVE: CASE EVENT DATE: 20190530
